FAERS Safety Report 10208324 (Version 2)
Quarter: 2014Q2

REPORT INFORMATION
  Report Type: Spontaneous
  Country: US (occurrence: US)
  Receive Date: 20140530
  Receipt Date: 20140530
  Transmission Date: 20141212
  Serious: Yes (Other)
  Sender: FDA-Public Use
  Company Number: US-NAPPMUNDI-USA-2013-0105205

PATIENT
  Age: 46 Year
  Sex: Male

DRUGS (4)
  1. MORPHINE SULFATE (SIMILAR TO NDA 19-516) [Suspect]
     Indication: DRUG ABUSE
     Route: 048
  2. OXYCODONE HYDROCHLORIDE (SIMILAR TO NDA 22-272) [Suspect]
     Indication: DRUG ABUSE
     Route: 048
  3. XANAX [Suspect]
     Indication: DRUG ABUSE
     Route: 048
  4. PHENCYCLIDINE [Suspect]
     Indication: DRUG ABUSE
     Route: 065

REACTIONS (3)
  - Substance abuse [Unknown]
  - Road traffic accident [Unknown]
  - Euphoric mood [Unknown]
